FAERS Safety Report 13315492 (Version 1)
Quarter: 2017Q1

REPORT INFORMATION
  Report Type: Spontaneous
  Country: AU (occurrence: AU)
  Receive Date: 20170310
  Receipt Date: 20170310
  Transmission Date: 20170428
  Serious: Yes (Other)
  Sender: FDA-Public Use
  Company Number: AU-009507513-1703AUS004012

PATIENT
  Age: 75 Year
  Sex: Female

DRUGS (4)
  1. VERAPAMIL [Interacting]
     Active Substance: VERAPAMIL HYDROCHLORIDE
  2. CELECOXIB. [Interacting]
     Active Substance: CELECOXIB
  3. SIMVASTATIN. [Suspect]
     Active Substance: SIMVASTATIN
     Route: 048
  4. GEMFIBROZIL. [Interacting]
     Active Substance: GEMFIBROZIL

REACTIONS (2)
  - Labelled drug-drug interaction medication error [Recovered/Resolved]
  - Myopathy [Recovered/Resolved]
